FAERS Safety Report 10024097 (Version 3)
Quarter: 2014Q2

REPORT INFORMATION
  Report Type: Spontaneous
  Country: US (occurrence: US)
  Receive Date: 20140320
  Receipt Date: 20140421
  Transmission Date: 20141212
  Serious: No
  Sender: FDA-Public Use
  Company Number: US-PFIZER INC-2014080298

PATIENT
  Age: 50 Year
  Sex: Female
  Weight: 56.7 kg

DRUGS (4)
  1. EFFEXOR [Suspect]
     Indication: PANIC DISORDER WITH AGORAPHOBIA
     Dosage: 150 MG, 2X/DAY
     Route: 048
  2. EFFEXOR [Suspect]
     Indication: OBSESSIVE-COMPULSIVE DISORDER
     Dosage: 150 MG, 1X/DAY
     Route: 048
  3. EFFEXOR [Suspect]
     Dosage: 150 MG, 2X/DAY
     Route: 048
  4. EFFEXOR [Suspect]
     Dosage: 150 MG, 1X/DAY
     Route: 048

REACTIONS (3)
  - Crying [Unknown]
  - Drug intolerance [Unknown]
  - Activities of daily living impaired [Unknown]
